FAERS Safety Report 13848381 (Version 1)
Quarter: 2017Q3

REPORT INFORMATION
  Report Type: Spontaneous
  Country: US (occurrence: US)
  Receive Date: 20170809
  Receipt Date: 20170809
  Transmission Date: 20171127
  Serious: No
  Sender: FDA-Public Use
  Company Number: US-PURDUE-USA-2017-0139621

PATIENT
  Age: 61 Year
  Sex: Female

DRUGS (3)
  1. BUTRANS [Suspect]
     Active Substance: BUPRENORPHINE
     Dosage: 15 MCG/HR, WEEKLY
     Route: 062
     Dates: start: 201704, end: 20170529
  2. BUTRANS [Suspect]
     Active Substance: BUPRENORPHINE
     Dosage: 10 UNK, UNK
     Route: 062
  3. BUTRANS [Suspect]
     Active Substance: BUPRENORPHINE
     Indication: MUSCULOSKELETAL PAIN
     Dosage: 10 UNK, UNK
     Route: 062
     Dates: start: 20170529

REACTIONS (6)
  - Application site erythema [Recovered/Resolved]
  - Inadequate analgesia [Recovered/Resolved]
  - Application site pruritus [Recovered/Resolved]
  - Application site scar [Not Recovered/Not Resolved]
  - Application site rash [Recovered/Resolved]
  - Application site pain [Recovered/Resolved]

NARRATIVE: CASE EVENT DATE: 20170515
